FAERS Safety Report 19881596 (Version 1)
Quarter: 2021Q3

REPORT INFORMATION
  Report Type: Spontaneous
  Country: ES (occurrence: ES)
  Receive Date: 20210924
  Receipt Date: 20210924
  Transmission Date: 20211014
  Serious: Yes (Hospitalization, Other)
  Sender: FDA-Public Use
  Company Number: ES-IPSEN BIOPHARMACEUTICALS, INC.-2021-22693

PATIENT
  Sex: Male
  Weight: 68 kg

DRUGS (14)
  1. FUROSEMIDE. [Suspect]
     Active Substance: FUROSEMIDE
     Indication: PRODUCT USED FOR UNKNOWN INDICATION
     Dosage: UNK
  2. LOSARTAN. [Concomitant]
     Active Substance: LOSARTAN
  3. ACETYLSALICYLIC ACID [Suspect]
     Active Substance: ASPIRIN
     Indication: PRODUCT USED FOR UNKNOWN INDICATION
     Dosage: UNK
  4. NOVONORM [Concomitant]
     Active Substance: REPAGLINIDE
     Indication: TYPE 2 DIABETES MELLITUS
     Dosage: 1 DF, Q8H
  5. SOMATULINE AUTOGEL [Suspect]
     Active Substance: LANREOTIDE ACETATE
     Indication: HEPATIC NEOPLASM
     Dosage: UNK UNK, QM
     Route: 065
  6. INSULIN GLARGINE [Suspect]
     Active Substance: INSULIN GLARGINE
     Indication: TYPE 2 DIABETES MELLITUS
     Dosage: UNK
  7. INSULIN GLARGINE [Suspect]
     Active Substance: INSULIN GLARGINE
     Dosage: 32 IU
     Dates: start: 20210805
  8. INSULIN GLARGINE [Suspect]
     Active Substance: INSULIN GLARGINE
     Dosage: DOSE REDUCED TO 26 IU
  9. HUMALOG [Concomitant]
     Active Substance: INSULIN LISPRO
     Indication: TYPE 2 DIABETES MELLITUS
     Dosage: IF GLYCEMIA GREATER THAN 250 MG/DL
  10. HUMALOG [Concomitant]
     Active Substance: INSULIN LISPRO
     Indication: DIABETES MELLITUS INADEQUATE CONTROL
  11. SOMATULINE AUTOGEL [Suspect]
     Active Substance: LANREOTIDE ACETATE
     Indication: BENIGN PANCREATIC NEOPLASM
  12. INSULIN GLARGINE [Suspect]
     Active Substance: INSULIN GLARGINE
     Dosage: 30 IU
     Dates: start: 20210804, end: 20210804
  13. IXIA [Suspect]
     Active Substance: OLMESARTAN MEDOXOMIL
     Indication: PRODUCT USED FOR UNKNOWN INDICATION
     Dosage: UNK
  14. INSULIN GLARGINE [Suspect]
     Active Substance: INSULIN GLARGINE
     Dosage: 28 IU
     Dates: start: 20210803, end: 20210803

REACTIONS (24)
  - Blood glucose abnormal [Unknown]
  - Fatigue [Unknown]
  - Condition aggravated [Not Recovered/Not Resolved]
  - Fluid retention [Unknown]
  - Weight increased [Unknown]
  - Nocturia [Unknown]
  - Visual impairment [Unknown]
  - Diabetes mellitus inadequate control [Not Recovered/Not Resolved]
  - Benign pancreatic neoplasm [Unknown]
  - Renal disorder [Not Recovered/Not Resolved]
  - Blood pressure abnormal [Unknown]
  - Hepatic cyst [Not Recovered/Not Resolved]
  - Cyanosis [Recovered/Resolved]
  - Blood disorder [Not Recovered/Not Resolved]
  - Hypoglycaemia [Recovered/Resolved]
  - Blood glucose fluctuation [Unknown]
  - Abdominal distension [Not Recovered/Not Resolved]
  - Intentional product misuse [Unknown]
  - Pancreatic cyst [Not Recovered/Not Resolved]
  - Weight decreased [Unknown]
  - Urine analysis abnormal [Unknown]
  - Blood sodium decreased [Unknown]
  - Hepatic neoplasm [Unknown]
  - Loss of consciousness [Recovered/Resolved]

NARRATIVE: CASE EVENT DATE: 20200130
